FAERS Safety Report 19126330 (Version 13)
Quarter: 2023Q2

REPORT INFORMATION
  Report Type: Spontaneous
  Country: CA (occurrence: CA)
  Receive Date: 20210413
  Receipt Date: 20230522
  Transmission Date: 20230722
  Serious: Yes (Hospitalization, Other)
  Sender: FDA-Public Use
  Company Number: CA-PFIZER INC-2020444762

PATIENT
  Age: 61 Year
  Sex: Male
  Weight: 139 kg

DRUGS (15)
  1. INLYTA [Suspect]
     Active Substance: AXITINIB
     Indication: Metastatic renal cell carcinoma
     Dosage: 5 MG, 2X/DAY
     Route: 048
     Dates: start: 20201111
  2. INLYTA [Suspect]
     Active Substance: AXITINIB
     Dosage: 4 MG, 2X/DAY
     Route: 048
  3. INLYTA [Suspect]
     Active Substance: AXITINIB
     Dosage: 2 MG, 2X/DAY
     Route: 048
  4. INLYTA [Suspect]
     Active Substance: AXITINIB
     Dosage: UNK
     Route: 048
     Dates: start: 20230120
  5. INLYTA [Suspect]
     Active Substance: AXITINIB
     Dosage: TAKE 3 TABLETS (3 MG TOTAL) BY MOUTH 2 TIMES A DAY
     Route: 048
     Dates: start: 20230208
  6. INLYTA [Suspect]
     Active Substance: AXITINIB
     Dosage: 1 MG TABLETS (3MG TOTAL) BY MOUTH 2 TIMES A DAY
     Route: 048
     Dates: start: 20230310
  7. INLYTA [Suspect]
     Active Substance: AXITINIB
     Dosage: TAKE 3 TABLETS (3 MG TOTAL) BY MOUTH 2 TIMES A DAY FOR 21 DAY)
     Route: 048
     Dates: start: 20230404
  8. INLYTA [Suspect]
     Active Substance: AXITINIB
     Dosage: 1 MG TABLET:TAKE 2 TABLET(2MG TOTAL) BY MOUTH 2 TIMES A DAY FOR 21DAYS, QTY:84 TABLETES
     Route: 048
     Dates: start: 20230516
  9. GLICLAZIDE [Concomitant]
     Active Substance: GLICLAZIDE
     Dosage: UNK
  10. KEYTRUDA [Concomitant]
     Active Substance: PEMBROLIZUMAB
     Dosage: 200 MG
  11. METFORMIN [Concomitant]
     Active Substance: METFORMIN HYDROCHLORIDE
     Dosage: UNK
  12. PERINDOPRIL [Concomitant]
     Active Substance: PERINDOPRIL
     Dosage: UNK
  13. ROSUVASTATIN [Concomitant]
     Active Substance: ROSUVASTATIN
     Dosage: UNK
  14. TYLENOL WITH CODEINE [Concomitant]
     Active Substance: ACETAMINOPHEN\CODEINE PHOSPHATE
     Dosage: UNK, AS NEEDED
  15. ERGOCALCIFEROL [Concomitant]
     Active Substance: ERGOCALCIFEROL
     Dosage: UNK

REACTIONS (13)
  - Blister [Unknown]
  - Pain [Unknown]
  - Hydronephrosis [Recovered/Resolved]
  - Cellulitis [Unknown]
  - Wound [Unknown]
  - Weight increased [Unknown]
  - Localised infection [Recovering/Resolving]
  - Wound complication [Unknown]
  - Brain fog [Unknown]
  - Weight decreased [Unknown]
  - Body surface area decreased [Unknown]
  - Body surface area increased [Unknown]
  - Off label use [Unknown]

NARRATIVE: CASE EVENT DATE: 20201111
